FAERS Safety Report 16469213 (Version 1)
Quarter: 2019Q3

REPORT INFORMATION
  Report Type: Spontaneous
  Country: US (occurrence: US)
  Receive Date: 20190621
  Receipt Date: 20190621
  Transmission Date: 20191004
  Serious: Yes (Hospitalization)
  Sender: FDA-Public Use
  Company Number: None

PATIENT
  Sex: Female

DRUGS (9)
  1. PROLIA [Suspect]
     Active Substance: DENOSUMAB
     Indication: OSTEOPOROSIS
     Dosage: ?          OTHER FREQUENCY:Q 6 MONTHS;?
     Route: 058
  2. ALLOPURINOL, CALCITRIOL, CALCIUM/D [Concomitant]
  3. TRAMADOL, TYLENOL, UNITHROID [Concomitant]
  4. VITAMIN B12, VITAMIN C [Concomitant]
  5. SIMVASTATIN, SYMBICORT, TORSEMIDE [Concomitant]
  6. LOSARTAN/HCT, NADOLOL, PROCRIT [Concomitant]
  7. LACTASE, LANTUS, LORATADINE [Concomitant]
  8. DIGESTIVE, DIVALPROEX, FAMOTIDINE [Concomitant]
  9. FLUTICASONE, FOLIC ACID, HUMALOG [Concomitant]

REACTIONS (7)
  - Dialysis [None]
  - Unevaluable event [None]
  - Cardiac failure congestive [None]
  - Fatigue [None]
  - Lung disorder [None]
  - Blood disorder [None]
  - Nephropathy [None]
